FAERS Safety Report 5266866-0 (Version None)
Quarter: 2007Q1

REPORT INFORMATION
  Report Type: 
  Country: None (occurrence: None)
  Receive Date: 20070316
  Receipt Date: 20070306
  Transmission Date: 20070707
  Serious: Yes (Other)
  Sender: FDA-Public Use
  Company Number: US-JNJFOC-20061203030

PATIENT
  Sex: Female
  Weight: 62.6 kg

DRUGS (10)
  1. REMICADE [Suspect]
     Dates: start: 20060301
  2. REMICADE [Suspect]
     Dates: start: 20060301
  3. REMICADE [Suspect]
     Indication: CROHN'S DISEASE
     Dates: start: 20060301
  4. SYNTHROID [Concomitant]
  5. ZOLOFT [Concomitant]
  6. ADVAIR DISKUS 100/50 [Concomitant]
  7. ALBUTEROL [Concomitant]
  8. CLARITIN [Concomitant]
  9. ZANTAC [Concomitant]
  10. PREDNISOLONE [Concomitant]

REACTIONS (5)
  - ARTHRITIS [None]
  - DEHYDRATION [None]
  - HALLUCINATION [None]
  - HYPOTENSION [None]
  - LOSS OF CONSCIOUSNESS [None]
